FAERS Safety Report 10004141 (Version 2)
Quarter: 2015Q1

REPORT INFORMATION
  Report Type: Report from Study
  Country: US (occurrence: US)
  Receive Date: 20140312
  Receipt Date: 20150310
  Transmission Date: 20150720
  Serious: Yes (Other)
  Sender: FDA-Public Use
  Company Number: PHEH2014US004840

PATIENT
  Sex: Male
  Weight: 76 kg

DRUGS (1)
  1. GLEEVEC [Suspect]
     Active Substance: IMATINIB MESYLATE
     Indication: GASTRIC CANCER
     Dosage: 400 MG, QD
     Route: 048

REACTIONS (4)
  - Hepatic lesion [Unknown]
  - Malignant neoplasm progression [Not Recovered/Not Resolved]
  - Gastric cancer [Not Recovered/Not Resolved]
  - Product use issue [Unknown]
